FAERS Safety Report 9301256 (Version 1)
Quarter: 2013Q2

REPORT INFORMATION
  Report Type: Spontaneous
  Country: AU (occurrence: AU)
  Receive Date: 20130521
  Receipt Date: 20130521
  Transmission Date: 20140414
  Serious: Yes (Other)
  Sender: FDA-Public Use
  Company Number: AU-ABBOTT-13P-008-1090417-00

PATIENT
  Age: 66 Year
  Sex: Male

DRUGS (4)
  1. LUCRIN DEPOT [Suspect]
     Indication: PRODUCT USED FOR UNKNOWN INDICATION
     Dates: start: 201001
  2. LUCRIN DEPOT [Suspect]
     Dates: start: 201205
  3. PRAVACHOL [Suspect]
     Indication: PRODUCT USED FOR UNKNOWN INDICATION
     Dates: end: 2013
  4. PRAVACHOL [Suspect]
     Dosage: DOSE DECREASED
     Dates: start: 2013

REACTIONS (6)
  - Radiotherapy [Unknown]
  - Brachytherapy [Unknown]
  - Asthenia [Not Recovered/Not Resolved]
  - Asthenia [Not Recovered/Not Resolved]
  - Fatigue [Not Recovered/Not Resolved]
  - Feeling abnormal [Not Recovered/Not Resolved]
